FAERS Safety Report 7658559-7 (Version None)
Quarter: 2011Q3

REPORT INFORMATION
  Report Type: 
  Country: None (occurrence: None)
  Receive Date: 20110805
  Receipt Date: 20110801
  Transmission Date: 20111222
  Serious: Yes (Other)
  Sender: FDA-Public Use
  Company Number: US-PFIZER INC-2010128182

PATIENT
  Sex: Female
  Weight: 79 kg

DRUGS (10)
  1. CHANTIX [Suspect]
     Indication: SMOKING CESSATION THERAPY
     Dosage: 0.5 MG, 1X/DAY
     Route: 048
     Dates: start: 20101004, end: 20101001
  2. CLINDAMYCIN [Concomitant]
     Dosage: UNK
  3. SPIRIVA [Concomitant]
     Dosage: UNK
  4. FORADIL [Concomitant]
     Dosage: UNK
  5. TERBUTALINE [Concomitant]
     Dosage: UNK
  6. THEOPHYLLINE [Concomitant]
     Dosage: UNK
  7. VALSARTAN [Concomitant]
     Dosage: UNK
  8. CHANTIX [Suspect]
     Dosage: 0.5 MG, 2X/DAY
     Route: 048
     Dates: start: 20101001
  9. CHANTIX [Suspect]
     Dosage: UNK
     Route: 048
     Dates: start: 20100901, end: 20101001
  10. ACCOLATE [Concomitant]
     Dosage: UNK

REACTIONS (2)
  - NERVOUSNESS [None]
  - WITHDRAWAL SYNDROME [None]
